FAERS Safety Report 23512792 (Version 1)
Quarter: 2024Q1

REPORT INFORMATION
  Report Type: Spontaneous
  Country: US (occurrence: US)
  Receive Date: 20240212
  Receipt Date: 20240212
  Transmission Date: 20240410
  Serious: Yes (Hospitalization)
  Sender: FDA-Public Use
  Company Number: US-MYLANLABS-2024M1011130

PATIENT
  Sex: Female

DRUGS (4)
  1. CELEBREX [Suspect]
     Active Substance: CELECOXIB
     Indication: Product used for unknown indication
     Dosage: UNK
     Route: 065
  2. PAXLOVID [Concomitant]
     Active Substance: NIRMATRELVIR\RITONAVIR
     Dosage: UNK
     Route: 065
  3. NIRMATRELVIR [Concomitant]
     Active Substance: NIRMATRELVIR
     Dosage: UNK
     Route: 065
  4. RITONAVIR [Concomitant]
     Active Substance: RITONAVIR
     Dosage: UNK
     Route: 065

REACTIONS (1)
  - Hospitalisation [Unknown]
